FAERS Safety Report 22243738 (Version 1)
Quarter: 2023Q2

REPORT INFORMATION
  Report Type: Spontaneous
  Country: AT (occurrence: AT)
  Receive Date: 20230424
  Receipt Date: 20230424
  Transmission Date: 20230722
  Serious: Yes (Other)
  Sender: FDA-Public Use
  Company Number: AT-JNJFOC-20230443349

PATIENT
  Age: 5 Decade

DRUGS (1)
  1. STELARA [Suspect]
     Active Substance: USTEKINUMAB
     Indication: Crohn^s disease
     Route: 058
     Dates: start: 20220919

REACTIONS (4)
  - Brucellosis [Unknown]
  - Weight gain poor [Unknown]
  - Abdominal hernia [Unknown]
  - Plastic surgery [Unknown]

NARRATIVE: CASE EVENT DATE: 20230101
